FAERS Safety Report 11394201 (Version 1)
Quarter: 2015Q3

REPORT INFORMATION
  Report Type: Spontaneous
  Country: HR (occurrence: None)
  Receive Date: 20150817
  Receipt Date: 20150817
  Transmission Date: 20151125
  Serious: Yes (Hospitalization)
  Sender: FDA-Public Use
  Company Number: IPC201508-000527

PATIENT
  Age: 77 Year
  Sex: Female

DRUGS (1)
  1. WARFARIN (WARFARIN) (WARFARIN) [Suspect]
     Active Substance: WARFARIN

REACTIONS (4)
  - Renal impairment [None]
  - International normalised ratio abnormal [None]
  - Proteinuria [None]
  - Renal tubular atrophy [None]
